FAERS Safety Report 26167589 (Version 1)
Quarter: 2025Q4

REPORT INFORMATION
  Report Type: Spontaneous
  Country: US (occurrence: US)
  Receive Date: 20251217
  Receipt Date: 20251217
  Transmission Date: 20260119
  Serious: Yes (Other)
  Sender: PACIRA
  Company Number: US-ORG100016242-2024000699

PATIENT
  Age: 27 Year
  Sex: Female

DRUGS (4)
  1. EXPAREL [Suspect]
     Active Substance: BUPIVACAINE
     Indication: Anal examination
     Route: 050
     Dates: start: 20241211, end: 20241211
  2. BUPIVACAINE [Suspect]
     Active Substance: BUPIVACAINE
     Indication: Anal examination
     Route: 050
     Dates: start: 20241211, end: 20241211
  3. LIDOCAINE [Suspect]
     Active Substance: LIDOCAINE
     Indication: Anal examination
     Dosage: NOT PROVIDED
     Route: 050
     Dates: start: 20241211, end: 20241211
  4. UNSPECIFIED INGREDIENT [Concomitant]
     Active Substance: UNSPECIFIED INGREDIENT
     Indication: Anaesthesia
     Dosage: NOT PROVIDED
     Route: 065
     Dates: start: 20241211, end: 20241211

REACTIONS (3)
  - Neurotoxicity [Unknown]
  - Bradycardia [Unknown]
  - Hypotension [Unknown]

NARRATIVE: CASE EVENT DATE: 20241211
